FAERS Safety Report 5508320-4 (Version None)
Quarter: 2007Q4

REPORT INFORMATION
  Report Type: 
  Country: None (occurrence: None)
  Receive Date: 20071106
  Receipt Date: 20071012
  Transmission Date: 20080405
  Serious: No
  Sender: FDA-Public Use
  Company Number: US-BOEHRINGER INGELHEIM PHARMACEUTICALS, INC.-2007-BP-22629BP

PATIENT
  Sex: Female
  Weight: 73 kg

DRUGS (3)
  1. MICARDIS [Suspect]
     Indication: HYPERTENSION
     Route: 048
     Dates: start: 20050101
  2. PAXIL [Concomitant]
  3. ATIVAN [Concomitant]

REACTIONS (1)
  - WEIGHT INCREASED [None]
